FAERS Safety Report 6096790-5 (Version None)
Quarter: 2009Q1

REPORT INFORMATION
  Report Type: 
  Country: None (occurrence: None)
  Receive Date: 20090227
  Receipt Date: 20090217
  Transmission Date: 20090719
  Serious: Yes (Death, Hospitalization, Other)
  Sender: FDA-Public Use
  Company Number: JP-PFIZER INC-2009169020

PATIENT

DRUGS (14)
  1. NORVASC [Suspect]
     Indication: HYPERTENSION
     Dosage: 5 MG, 2X/DAY
     Route: 048
     Dates: start: 20080918, end: 20090107
  2. NOVOLIN R [Suspect]
     Indication: HYPERGLYCAEMIA
     Dosage: UNK
     Route: 042
     Dates: start: 20090109
  3. NOVOLIN R [Suspect]
     Dosage: UNK
     Dates: start: 20090111
  4. NEORAL [Suspect]
     Dosage: 120 MG, 1X/DAY
     Route: 048
     Dates: start: 20081004, end: 20090101
  5. PREDONINE [Suspect]
     Indication: NEPHRITIS
     Dosage: 40 MG, 1X/DAY
     Route: 048
     Dates: start: 20080822, end: 20080926
  6. PREDONINE [Suspect]
     Dosage: 35 MG, 1X/DAY
     Route: 048
     Dates: start: 20080902, end: 20081010
  7. PREDONINE [Suspect]
     Dosage: 55 MG, 1X/DAY
     Route: 048
     Dates: start: 20081014, end: 20081012
  8. PREDONINE [Suspect]
     Dosage: 45 MG, 1X/DAY
     Route: 048
     Dates: start: 20081016, end: 20081114
  9. PREDONINE [Suspect]
     Dosage: 40 MG, 1X/DAY
     Route: 048
     Dates: start: 20081115, end: 20081128
  10. PREDONINE [Suspect]
     Dosage: 35 MG, 1X/DAY
     Route: 048
     Dates: start: 20081129, end: 20081212
  11. PREDONINE [Suspect]
     Dosage: 30 MG, 1X/DAY
     Route: 048
     Dates: start: 20081213, end: 20081226
  12. PREDONINE [Suspect]
     Dosage: 25 MG, 1X/DAY
     Route: 048
     Dates: start: 20081227, end: 20090107
  13. ADALAT CC [Concomitant]
     Route: 048
  14. ARTIST [Concomitant]
     Dosage: UNK
     Route: 048
     Dates: start: 20081101, end: 20090107

REACTIONS (4)
  - ASCITES [None]
  - DIABETES MELLITUS [None]
  - HEPATIC FUNCTION ABNORMAL [None]
  - PULMONARY OEDEMA [None]
